FAERS Safety Report 6537380-7 (Version None)
Quarter: 2010Q2

REPORT INFORMATION
  Report Type: 
  Country: None (occurrence: None)
  Receive Date: 20100114
  Receipt Date: 20100106
  Transmission Date: 20101027
  Serious: Yes (Other)
  Sender: FDA-Public Use
  Company Number: US-NOVOPROD-291190

PATIENT
  Sex: Female

DRUGS (5)
  1. ACTIVELLA [Suspect]
     Indication: VULVOVAGINAL DRYNESS
     Dosage: UNKNOWN
     Route: 048
     Dates: start: 20070101
  2. ACTIVELLA [Suspect]
     Indication: VULVOVAGINAL BURNING SENSATION
  3. LEXAPRO [Concomitant]
     Indication: ANXIETY
     Route: 048
     Dates: start: 20080101
  4. XANAX [Concomitant]
     Indication: SLEEP DISORDER
     Route: 048
     Dates: start: 19990101
  5. DIOVAN                             /01319601/ [Concomitant]
     Indication: HYPERTENSION
     Route: 048

REACTIONS (2)
  - CEREBROVASCULAR ACCIDENT [None]
  - VISION BLURRED [None]
